FAERS Safety Report 16890822 (Version 1)
Quarter: 2019Q4

REPORT INFORMATION
  Report Type: Spontaneous
  Country: GB (occurrence: GB)
  Receive Date: 20191007
  Receipt Date: 20191007
  Transmission Date: 20200122
  Serious: Yes (Other)
  Sender: FDA-Public Use
  Company Number: GB-SA-2019SA271195

PATIENT
  Sex: Male

DRUGS (4)
  1. PIRFENIDONE. [Suspect]
     Active Substance: PIRFENIDONE
     Indication: IDIOPATHIC PULMONARY FIBROSIS
     Dosage: 801 MG,QD
     Route: 048
     Dates: start: 20150114, end: 201506
  2. PIRFENIDONE. [Suspect]
     Active Substance: PIRFENIDONE
     Dosage: 2403 MG,QD
     Route: 048
     Dates: start: 2015
  3. PIRFENIDONE. [Suspect]
     Active Substance: PIRFENIDONE
     Dosage: 2403 MG,QD
     Route: 048
     Dates: start: 20150114, end: 201506
  4. GAVISCON [Suspect]
     Active Substance: ALUMINUM HYDROXIDE\MAGNESIUM CARBONATE
     Indication: PRODUCT USED FOR UNKNOWN INDICATION
     Route: 065

REACTIONS (26)
  - Disturbance in attention [Unknown]
  - Constipation [Unknown]
  - Burning sensation [Not Recovered/Not Resolved]
  - Vomiting [Unknown]
  - Muscle strain [Not Recovered/Not Resolved]
  - Nasal congestion [Unknown]
  - Aspiration [Unknown]
  - Sunburn [Unknown]
  - Sunburn [Recovered/Resolved]
  - Pulse absent [Not Recovered/Not Resolved]
  - Gastrooesophageal reflux disease [Not Recovered/Not Resolved]
  - Weight decreased [Not Recovered/Not Resolved]
  - Laryngeal inflammation [Unknown]
  - Hiatus hernia [Unknown]
  - Dizziness [Unknown]
  - Productive cough [Unknown]
  - Flatulence [Unknown]
  - Dyspnoea [Unknown]
  - Rash [Recovered/Resolved]
  - Cough [Recovered/Resolved]
  - Asthma [Unknown]
  - Nasopharyngitis [Unknown]
  - Retching [Unknown]
  - Rash macular [Recovered/Resolved]
  - Cough [Unknown]
  - Pharyngeal mass [Unknown]
